FAERS Safety Report 21960613 (Version 3)
Quarter: 2023Q2

REPORT INFORMATION
  Report Type: Spontaneous
  Country: CA (occurrence: CA)
  Receive Date: 20230207
  Receipt Date: 20230413
  Transmission Date: 20230721
  Serious: Yes (Hospitalization)
  Sender: FDA-Public Use
  Company Number: CA-NOVOPROD-1017638

PATIENT
  Age: 64 Year
  Sex: Male
  Weight: 155 kg

DRUGS (2)
  1. INSULIN DETEMIR [Suspect]
     Active Substance: INSULIN DETEMIR
     Indication: Type 2 diabetes mellitus
     Dosage: 20-A,20-PM (ABOUT 2ND WEEK JAN-2023)
     Dates: start: 20230109, end: 20230113
  2. HUMALOG [Concomitant]
     Active Substance: INSULIN LISPRO
     Indication: Product used for unknown indication
     Dosage: 9 PER MEAL
     Dates: start: 2000

REACTIONS (3)
  - Toothache [Recovered/Resolved]
  - Diabetic ketosis [Recovered/Resolved]
  - Product delivery mechanism issue [Unknown]

NARRATIVE: CASE EVENT DATE: 20230101
